FAERS Safety Report 9710907 (Version 1)
Quarter: 2013Q4

REPORT INFORMATION
  Report Type: Spontaneous
  Country: US (occurrence: US)
  Receive Date: 20131126
  Receipt Date: 20131126
  Transmission Date: 20140711
  Serious: No
  Sender: FDA-Public Use
  Company Number: US-BRISTOL-MYERS SQUIBB COMPANY-19029347

PATIENT
  Age: 63 Year
  Sex: Female

DRUGS (5)
  1. BYETTA [Suspect]
     Dates: start: 2009, end: 2009
  2. GLIPIZIDE [Concomitant]
     Dosage: 10(UNITS NOS)
  3. METFORMIN [Concomitant]
     Dosage: 1000 (UNITS NOS).
  4. GLYBURIDE [Concomitant]
  5. ACTOS [Concomitant]
     Dosage: 45(UNITS NOS).

REACTIONS (2)
  - Nausea [Recovered/Resolved]
  - Vomiting [Recovered/Resolved]
